FAERS Safety Report 18932495 (Version 2)
Quarter: 2021Q3

REPORT INFORMATION
  Report Type: Spontaneous
  Country: US (occurrence: US)
  Receive Date: 20210224
  Receipt Date: 20210930
  Transmission Date: 20211014
  Serious: Yes (Hospitalization, Other)
  Sender: FDA-Public Use
  Company Number: US-GILEAD-2021-0517968

PATIENT
  Age: 42 Year
  Sex: Male
  Weight: 81.65 kg

DRUGS (20)
  1. VIAGRA [Concomitant]
     Active Substance: SILDENAFIL CITRATE
  2. CIPROFLOXACIN HCL [Concomitant]
     Active Substance: CIPROFLOXACIN HYDROCHLORIDE
  3. SUSTIVA [Concomitant]
     Active Substance: EFAVIRENZ
  4. VIRAMUNE XR [Concomitant]
     Active Substance: NEVIRAPINE
  5. MULTIVITAMIN HP [Concomitant]
  6. NASONEX [Concomitant]
     Active Substance: MOMETASONE FUROATE
  7. VIREAD [Suspect]
     Active Substance: TENOFOVIR DISOPROXIL FUMARATE
     Indication: HIV INFECTION
     Dosage: UNK
     Route: 048
     Dates: start: 2001, end: 2005
  8. TRUVADA [Suspect]
     Active Substance: EMTRICITABINE\TENOFOVIR DISOPROXIL FUMARATE
     Indication: HIV INFECTION
     Dosage: UNK
     Route: 048
     Dates: start: 2005, end: 2013
  9. BENZONATATE. [Concomitant]
     Active Substance: BENZONATATE
  10. LINZESS [Concomitant]
     Active Substance: LINACLOTIDE
  11. TRIAMCINOLONE [Concomitant]
     Active Substance: TRIAMCINOLONE
  12. DESCOVY [Concomitant]
     Active Substance: EMTRICITABINE\TENOFOVIR ALAFENAMIDE FUMARATE
  13. CIALIS [Concomitant]
     Active Substance: TADALAFIL
  14. FLUCONAZOLE. [Concomitant]
     Active Substance: FLUCONAZOLE
  15. PROMETHAZINE ? CODEINE [CODEINE PHOSPHATE;PROMETHAZINE HYDROCHLORIDE] [Concomitant]
  16. ATRIPLA [Suspect]
     Active Substance: EFAVIRENZ\EMTRICITABINE\TENOFOVIR DISOPROXIL FUMARATE
     Indication: HIV INFECTION
     Dosage: UNK
     Route: 048
     Dates: start: 2001
  17. TOBRADEX [Concomitant]
     Active Substance: DEXAMETHASONE\TOBRAMYCIN
  18. ATRIPLA [Suspect]
     Active Substance: EFAVIRENZ\EMTRICITABINE\TENOFOVIR DISOPROXIL FUMARATE
     Dosage: UNK
     Route: 048
     Dates: start: 20131212, end: 20170905
  19. BIKTARVY [Concomitant]
     Active Substance: BICTEGRAVIR SODIUM\EMTRICITABINE\TENOFOVIR ALAFENAMIDE FUMARATE
  20. VIRAMUNE [Concomitant]
     Active Substance: NEVIRAPINE

REACTIONS (16)
  - Abdominal discomfort [Unknown]
  - Bone density decreased [Unknown]
  - Osteopenia [Not Recovered/Not Resolved]
  - Anhedonia [Not Recovered/Not Resolved]
  - Decreased appetite [Unknown]
  - Road traffic accident [Unknown]
  - Pain [Not Recovered/Not Resolved]
  - Anxiety [Not Recovered/Not Resolved]
  - Bone loss [Unknown]
  - Abnormal dreams [Unknown]
  - Bone disorder [Unknown]
  - Emotional distress [Not Recovered/Not Resolved]
  - Weight decreased [Unknown]
  - Lower limb fracture [Unknown]
  - Femur fracture [Not Recovered/Not Resolved]
  - Hand fracture [Not Recovered/Not Resolved]

NARRATIVE: CASE EVENT DATE: 200906
